FAERS Safety Report 7347317-9 (Version None)
Quarter: 2011Q1

REPORT INFORMATION
  Report Type: 
  Country: None (occurrence: None)
  Receive Date: 20110311
  Receipt Date: 20110302
  Transmission Date: 20110831
  Serious: Yes (Hospitalization)
  Sender: FDA-Public Use
  Company Number: JP-ROCHE-746879

PATIENT
  Sex: Female
  Weight: 45 kg

DRUGS (20)
  1. AVASTIN [Suspect]
     Route: 042
     Dates: start: 20100629, end: 20100902
  2. AVASTIN [Suspect]
     Dosage: FREQUENCY: 1/3 WEEK
     Route: 042
     Dates: start: 20101018, end: 20101128
  3. AMLODIPINE [Suspect]
     Route: 048
  4. 5-FU [Concomitant]
     Route: 040
     Dates: start: 20100629, end: 20100902
  5. AVASTIN [Suspect]
     Dosage: FREQUENCY: 1/3 WEEKS
     Route: 042
     Dates: start: 20100927, end: 20101017
  6. VANCOMYCIN [Suspect]
     Route: 065
  7. CLARITHROMYCIN [Suspect]
     Route: 048
  8. ELPLAT [Suspect]
     Indication: COLON CANCER METASTATIC
     Route: 041
     Dates: start: 20091029, end: 20100527
  9. TOPOTECAN [Concomitant]
     Dates: start: 20100629, end: 20100902
  10. XELODA [Suspect]
     Route: 048
     Dates: start: 20101018, end: 20101128
  11. ELPLAT [Suspect]
     Dosage: FREQUENCY 1/3 WEEK
     Route: 041
     Dates: start: 20100927, end: 20101017
  12. XELODA [Suspect]
     Indication: COLON CANCER
     Route: 048
     Dates: start: 20100927, end: 20101017
  13. CLOSTRIDIUM BUTYRICUM [Suspect]
     Dosage: FORM: MINUTE GRAIN
     Route: 048
  14. LEVOFOLINATE [Concomitant]
     Route: 041
     Dates: start: 20100629, end: 20100902
  15. BIFIDOBACTERIUM [Suspect]
     Route: 048
  16. 5-FU [Concomitant]
     Route: 040
     Dates: start: 20091029, end: 20100527
  17. AVASTIN [Suspect]
     Indication: COLON CANCER METASTATIC
     Route: 042
     Dates: start: 20091029, end: 20100327
  18. OMEPRAZOLE [Suspect]
     Route: 065
  19. 5-FU [Concomitant]
     Route: 041
     Dates: start: 20100629, end: 20100901
  20. 5-FU [Concomitant]
     Route: 041
     Dates: start: 20091029, end: 20100501

REACTIONS (2)
  - URTICARIA [None]
  - PSEUDOMEMBRANOUS COLITIS [None]
